FAERS Safety Report 21104737 (Version 1)
Quarter: 2022Q3

REPORT INFORMATION
  Report Type: Spontaneous
  Country: DE (occurrence: DE)
  Receive Date: 20220720
  Receipt Date: 20220720
  Transmission Date: 20221027
  Serious: Yes (Hospitalization)
  Sender: FDA-Public Use
  Company Number: DE-NOVARTISPH-NVSC2022DE162755

PATIENT
  Age: 65 Year
  Sex: Female

DRUGS (5)
  1. ETOPOSIDE [Suspect]
     Active Substance: ETOPOSIDE
     Indication: Diffuse large B-cell lymphoma recurrent
     Dosage: 100 MG/M2
     Route: 042
     Dates: start: 20220505, end: 20220626
  2. RITUXIMAB [Suspect]
     Active Substance: RITUXIMAB
     Indication: Diffuse large B-cell lymphoma recurrent
     Dosage: 375 MG/M2
     Route: 042
     Dates: start: 20220506, end: 20220622
  3. CARBOPLATIN [Suspect]
     Active Substance: CARBOPLATIN
     Indication: Diffuse large B-cell lymphoma recurrent
     Dosage: 800 MG
     Route: 042
     Dates: start: 20220505, end: 20220626
  4. IFOSFAMIDE [Suspect]
     Active Substance: IFOSFAMIDE
     Indication: Diffuse large B-cell lymphoma recurrent
     Dosage: 5000 MG/M2, Q24H
     Route: 042
     Dates: start: 20220510, end: 20220623
  5. POLATUZUMAB VEDOTIN [Suspect]
     Active Substance: POLATUZUMAB VEDOTIN
     Indication: Diffuse large B-cell lymphoma recurrent
     Dosage: 1.8 MG/KG
     Route: 042
     Dates: start: 20220509, end: 20220622

REACTIONS (4)
  - Diarrhoea [Recovering/Resolving]
  - Infection [Recovering/Resolving]
  - C-reactive protein increased [Recovering/Resolving]
  - Thrombocytopenia [Recovering/Resolving]

NARRATIVE: CASE EVENT DATE: 20220704
